FAERS Safety Report 19162749 (Version 1)
Quarter: 2021Q2

REPORT INFORMATION
  Report Type: Spontaneous
  Country: US (occurrence: US)
  Receive Date: 20210419
  Receipt Date: 20210419
  Transmission Date: 20210717
  Serious: No
  Sender: FDA-Public Use
  Company Number: None

PATIENT
  Age: 67 Year
  Sex: Female
  Weight: 51.3 kg

DRUGS (15)
  1. PHENERGAN [Concomitant]
     Active Substance: PROMETHAZINE HYDROCHLORIDE
  2. GABAPENTIN. [Concomitant]
     Active Substance: GABAPENTIN
  3. MEDICAL CANNABIS RED 500 MG DISTILLATE PREFILLED VAPORIZER (CBD/THC) [Suspect]
     Active Substance: CANNABIDIOL\.DELTA.8-TETRAHYDROCANNABINOL\DEVICE\HERBALS
     Indication: VOMITING
     Dosage: ?          QUANTITY:3 PUFF(S);?
     Route: 055
     Dates: start: 20210413, end: 20210414
  4. ADDERALL [Concomitant]
     Active Substance: AMPHETAMINE ASPARTATE\AMPHETAMINE SULFATE\DEXTROAMPHETAMINE SACCHARATE\DEXTROAMPHETAMINE SULFATE
  5. VITAMIN D [Concomitant]
     Active Substance: VITAMIN D NOS
  6. RED DISTILLATE PREFILLED VAPORIZER (CBD/THC) [Suspect]
     Active Substance: CANNABIDIOL\.DELTA.8-TETRAHYDROCANNABINOL\DEVICE\HERBALS
     Indication: VOMITING
     Dosage: ?          QUANTITY:2 PUFF(S);?
     Route: 055
     Dates: start: 20210415, end: 20210415
  7. RED DISTILLATE PREFILLED VAPORIZER (CBD/THC) [Suspect]
     Active Substance: CANNABIDIOL\.DELTA.8-TETRAHYDROCANNABINOL\DEVICE\HERBALS
     Indication: PAIN
     Dosage: ?          QUANTITY:2 PUFF(S);?
     Route: 055
     Dates: start: 20210415, end: 20210415
  8. OMEPRAZOLE. [Concomitant]
     Active Substance: OMEPRAZOLE
  9. MEDICAL CANNABIS RED 500 MG DISTILLATE PREFILLED VAPORIZER (CBD/THC) [Suspect]
     Active Substance: CANNABIDIOL\.DELTA.8-TETRAHYDROCANNABINOL\DEVICE\HERBALS
     Indication: NAUSEA
     Dosage: ?          QUANTITY:3 PUFF(S);?
     Route: 055
     Dates: start: 20210413, end: 20210414
  10. WELLBUTRIN [Concomitant]
     Active Substance: BUPROPION HYDROCHLORIDE
  11. LAMICTAL [Concomitant]
     Active Substance: LAMOTRIGINE
  12. ONCE DAILY MULTI VITAMIN [Concomitant]
  13. RED DISTILLATE PREFILLED VAPORIZER (CBD/THC) [Suspect]
     Active Substance: CANNABIDIOL\.DELTA.8-TETRAHYDROCANNABINOL\DEVICE\HERBALS
     Indication: NAUSEA
     Dosage: ?          QUANTITY:2 PUFF(S);?
     Route: 055
     Dates: start: 20210415, end: 20210415
  14. MEDICAL CANNABIS RED 500 MG DISTILLATE PREFILLED VAPORIZER (CBD/THC) [Suspect]
     Active Substance: CANNABIDIOL\.DELTA.8-TETRAHYDROCANNABINOL\DEVICE\HERBALS
     Indication: PAIN
     Dosage: ?          QUANTITY:3 PUFF(S);?
     Route: 055
     Dates: start: 20210413, end: 20210414
  15. ODANSETRON [Concomitant]
     Active Substance: ONDANSETRON

REACTIONS (2)
  - Device defective [None]
  - Drug ineffective [None]

NARRATIVE: CASE EVENT DATE: 20210415
